FAERS Safety Report 7109644-X (Version None)
Quarter: 2010Q4

REPORT INFORMATION
  Report Type: 
  Country: None (occurrence: None)
  Receive Date: 20101115
  Receipt Date: 20101115
  Transmission Date: 20110411
  Serious: Yes (Other)
  Sender: FDA-Public Use
  Company Number: None

PATIENT
  Sex: Female
  Weight: 112.3 kg

DRUGS (5)
  1. TAXOTERE [Suspect]
     Indication: BREAST CANCER
     Dosage: 160 MG EVERY 3 WEEKS IV
     Route: 042
     Dates: start: 20101028
  2. FAMOTIDINE [Concomitant]
  3. DIPHENHYDRAMINE [Concomitant]
  4. GRANISETRON + DEXAMETHASONE [Concomitant]
  5. CYCLOPHOSPHAMIDE [Concomitant]

REACTIONS (2)
  - BACK PAIN [None]
  - FLUSHING [None]
